FAERS Safety Report 10697468 (Version 1)
Quarter: 2015Q1

REPORT INFORMATION
  Report Type: Spontaneous
  Country: DE (occurrence: DE)
  Receive Date: 20150108
  Receipt Date: 20150108
  Transmission Date: 20150721
  Serious: Yes (Hospitalization)
  Sender: FDA-Public Use
  Company Number: GXKR2015DE000444

PATIENT
  Age: 71 Year
  Sex: Male

DRUGS (1)
  1. SIMVASTATIN 1A PHARMA [Suspect]
     Active Substance: SIMVASTATIN
     Dosage: UNK UKN, UNK
     Route: 048
     Dates: start: 201406

REACTIONS (4)
  - Arrhythmia [Unknown]
  - Dyspnoea [Unknown]
  - Dilatation ventricular [Unknown]
  - Asthenia [Unknown]
